FAERS Safety Report 7412589-9 (Version None)
Quarter: 2011Q2

REPORT INFORMATION
  Report Type: 
  Country: None (occurrence: None)
  Receive Date: 20110413
  Receipt Date: 20110411
  Transmission Date: 20111010
  Serious: Yes (Death)
  Sender: FDA-Public Use
  Company Number: AT-ABBOTT-11P-009-0717946-00

PATIENT
  Age: 69 Year
  Sex: Male
  Weight: 88 kg

DRUGS (29)
  1. SIMVASTATIN [Concomitant]
     Indication: PRODUCT USED FOR UNKNOWN INDICATION
     Route: 048
  2. SPIRIVA [Concomitant]
     Indication: PRODUCT USED FOR UNKNOWN INDICATION
     Dosage: 18 PG
     Route: 048
     Dates: start: 20100506
  3. RETACRIT [Concomitant]
     Dosage: 3X A WEEK, 14000 E
     Route: 042
     Dates: start: 20100709, end: 20100923
  4. THIOCTACID [Concomitant]
     Indication: PRODUCT USED FOR UNKNOWN INDICATION
     Route: 042
     Dates: start: 20100518
  5. FERRLECIT [Concomitant]
     Route: 042
     Dates: start: 20100614, end: 20100915
  6. RETACRIT [Concomitant]
     Dosage: 3X A WEEK, 6000 E
     Route: 042
     Dates: start: 20101111, end: 20101220
  7. THIOCTACID [Concomitant]
     Dosage: 10 TIMES
     Route: 042
     Dates: start: 20101209, end: 20101230
  8. CEREBRYL [Concomitant]
     Indication: PRODUCT USED FOR UNKNOWN INDICATION
     Route: 048
  9. THEOPHYLLINE [Concomitant]
     Indication: PRODUCT USED FOR UNKNOWN INDICATION
     Route: 048
     Dates: start: 20100506
  10. FERRLECIT [Concomitant]
     Indication: PRODUCT USED FOR UNKNOWN INDICATION
     Route: 042
     Dates: start: 20100308, end: 20100613
  11. LANSOPRAZOL [Concomitant]
     Indication: PRODUCT USED FOR UNKNOWN INDICATION
     Route: 048
     Dates: start: 20100506
  12. CEFPIROM [Concomitant]
     Indication: PNEUMONIA
     Route: 042
     Dates: start: 20100701, end: 20100701
  13. COENAC [Concomitant]
     Indication: PRODUCT USED FOR UNKNOWN INDICATION
     Route: 048
     Dates: start: 20100917, end: 20101106
  14. FLIXOTIDE [Concomitant]
     Indication: PRODUCT USED FOR UNKNOWN INDICATION
     Route: 048
     Dates: start: 20100506
  15. ZEMPLAR [Suspect]
     Indication: RENAL FAILURE CHRONIC
     Dates: start: 20100601, end: 20110222
  16. AZITHROMYCIN [Concomitant]
     Indication: PNEUMONIA
     Route: 048
     Dates: start: 20100701, end: 20100701
  17. RETACRIT [Concomitant]
     Indication: PRODUCT USED FOR UNKNOWN INDICATION
     Dosage: 3X A WEEK, 10000 E
     Route: 042
     Dates: start: 20100506, end: 20100706
  18. FERRLECIT [Concomitant]
     Route: 042
     Dates: start: 20101220
  19. RETACRIT [Concomitant]
     Dosage: 3X A WEEK, 6000 E
     Route: 042
     Dates: start: 20100416, end: 20100505
  20. RETACRIT [Concomitant]
     Dosage: 3X A WEEK, 2000 E
     Route: 042
     Dates: start: 20101220
  21. LOFTYL [Concomitant]
     Indication: PRODUCT USED FOR UNKNOWN INDICATION
     Route: 048
     Dates: start: 20100506
  22. ANTIPHOSPHAT [Concomitant]
     Indication: HYPERPARATHYROIDISM SECONDARY
     Dosage: 28, PER WEEK
  23. FERRLECIT [Concomitant]
     Route: 042
     Dates: start: 20100916, end: 20101220
  24. ADALAT [Concomitant]
     Indication: PRODUCT USED FOR UNKNOWN INDICATION
     Route: 048
     Dates: start: 20090917, end: 20101106
  25. ITERIUM [Concomitant]
     Indication: PRODUCT USED FOR UNKNOWN INDICATION
     Route: 048
     Dates: start: 20090917, end: 20101106
  26. NEUROBION [Concomitant]
     Indication: PRODUCT USED FOR UNKNOWN INDICATION
     Dosage: 1 X 1
     Route: 048
  27. FORADIL [Concomitant]
     Indication: PRODUCT USED FOR UNKNOWN INDICATION
     Route: 048
     Dates: start: 20100506
  28. XALATAN [Concomitant]
     Indication: PRODUCT USED FOR UNKNOWN INDICATION
     Dosage: GTT - EYE DROPS
     Dates: start: 20100506
  29. ALNA [Concomitant]
     Indication: PRODUCT USED FOR UNKNOWN INDICATION
     Route: 048
     Dates: start: 20100506

REACTIONS (1)
  - CARDIAC ARREST [None]
